FAERS Safety Report 19783118 (Version 3)
Quarter: 2022Q2

REPORT INFORMATION
  Report Type: Report from Study
  Country: US (occurrence: US)
  Receive Date: 20210902
  Receipt Date: 20220526
  Transmission Date: 20220720
  Serious: Yes (Other)
  Sender: FDA-Public Use
  Company Number: US-BIOMARINAP-US-2021-138248

PATIENT
  Age: 5 Year
  Sex: Female
  Weight: 19.9 kg

DRUGS (12)
  1. BRINEURA [Suspect]
     Active Substance: CERLIPONASE ALFA
     Indication: Neuronal ceroid lipofuscinosis
     Dosage: 300 MILLIGRAM, QOW
     Route: 020
     Dates: start: 20210819
  2. RISPERDAL [Suspect]
     Active Substance: RISPERIDONE
     Indication: Epileptic encephalopathy
     Route: 065
     Dates: start: 20200415
  3. SODIUM CHLORIDE [Concomitant]
     Active Substance: SODIUM CHLORIDE
     Indication: Gaze palsy
     Dates: start: 20210806, end: 20210806
  4. CLOBAZAM [Concomitant]
     Active Substance: CLOBAZAM
     Indication: Epileptic encephalopathy
     Dates: start: 20210427
  5. Sodium Chloride 0.9% + Dextrose 5% [Concomitant]
     Indication: Gaze palsy
     Dates: start: 20210806, end: 20210807
  6. Sodium Chloride 0.9% + Dextrose 5% [Concomitant]
     Dates: start: 20210805, end: 20210806
  7. PERIACTIN [Concomitant]
     Active Substance: CYPROHEPTADINE HYDROCHLORIDE
     Indication: Failure to thrive
     Dates: start: 20210427
  8. DEPAKOTE [Concomitant]
     Active Substance: DIVALPROEX SODIUM
     Indication: Epileptic encephalopathy
     Dates: start: 20210421
  9. PYRIDOXINE [Concomitant]
     Active Substance: PYRIDOXINE
     Indication: Epileptic encephalopathy
     Dates: start: 20210323
  10. KEPPRA [Concomitant]
     Active Substance: LEVETIRACETAM
     Indication: Epileptic encephalopathy
     Dates: start: 20210121
  11. DIASTAT [Concomitant]
     Active Substance: DIAZEPAM
     Indication: Epileptic encephalopathy
     Dates: start: 20200107
  12. VITAMINS [Concomitant]
     Active Substance: VITAMINS
     Indication: Supplementation therapy
     Dates: start: 20210819

REACTIONS (1)
  - Gaze palsy [Recovered/Resolved]

NARRATIVE: CASE EVENT DATE: 20210820
